FAERS Safety Report 7765370-5 (Version None)
Quarter: 2011Q3

REPORT INFORMATION
  Report Type: 
  Country: None (occurrence: None)
  Receive Date: 20110916
  Receipt Date: 20110906
  Transmission Date: 20111222
  Serious: Yes (Hospitalization)
  Sender: FDA-Public Use
  Company Number: ACO_26490_2011

PATIENT
  Age: 60 Year
  Sex: Female
  Weight: 106.1 kg

DRUGS (9)
  1. AMPYRA [Suspect]
     Indication: MULTIPLE SCLEROSIS
     Dosage: 10 MG, BID, ORAL
     Route: 048
     Dates: start: 20110601
  2. COPAXONE [Concomitant]
  3. ACTOS [Concomitant]
  4. NEURONTIN [Concomitant]
  5. METOPROLOL /00376902/ (METOPROLOL TARTRATE) [Concomitant]
  6. METFORMIN HCL [Concomitant]
  7. SIMVASTATIN [Concomitant]
  8. FUROSEMIDE [Concomitant]
  9. GLIPIZIDE [Concomitant]

REACTIONS (1)
  - PULMONARY EMBOLISM [None]
